FAERS Safety Report 7344096-6 (Version None)
Quarter: 2011Q1

REPORT INFORMATION
  Report Type: 
  Country: None (occurrence: None)
  Receive Date: 20110310
  Receipt Date: 20100609
  Transmission Date: 20110831
  Serious: No
  Sender: FDA-Public Use
  Company Number: A0863972A

PATIENT
  Age: 79 Year
  Sex: Female

DRUGS (2)
  1. NICODERM CQ [Suspect]
  2. NICORETTE [Suspect]
     Dates: start: 20100609

REACTIONS (5)
  - NAUSEA [None]
  - MALAISE [None]
  - NONSPECIFIC REACTION [None]
  - DIZZINESS [None]
  - VOMITING [None]
